FAERS Safety Report 15574139 (Version 1)
Quarter: 2018Q4

REPORT INFORMATION
  Report Type: Report from Study
  Country: US (occurrence: US)
  Receive Date: 20181101
  Receipt Date: 20181101
  Transmission Date: 20190205
  Serious: Yes (Other)
  Sender: FDA-Public Use
  Company Number: PHEH2018US045791

PATIENT
  Age: 74 Year
  Sex: Male
  Weight: 68.94 kg

DRUGS (1)
  1. GLATOPA [Suspect]
     Active Substance: GLATIRAMER ACETATE
     Indication: MULTIPLE SCLEROSIS
     Dosage: 40 MG, TIW (ROTATES SITES)
     Route: 058
     Dates: start: 20181012

REACTIONS (3)
  - Concomitant disease aggravated [Not Recovered/Not Resolved]
  - Peripheral swelling [Unknown]
  - Muscular weakness [Not Recovered/Not Resolved]

NARRATIVE: CASE EVENT DATE: 20181021
